FAERS Safety Report 21193332 (Version 1)
Quarter: 2022Q3

REPORT INFORMATION
  Report Type: Spontaneous
  Country: GB (occurrence: GB)
  Receive Date: 20220810
  Receipt Date: 20220810
  Transmission Date: 20221027
  Serious: Yes (Other)
  Sender: FDA-Public Use
  Company Number: GB-MHRA-MED-202207292259557570-BGTDJ

PATIENT
  Age: 57 Year
  Sex: Female

DRUGS (2)
  1. PREDNISOLONE [Suspect]
     Active Substance: PREDNISOLONE
     Indication: Adverse drug reaction
     Dosage: DURATION : 1 DAY
     Dates: start: 20220728, end: 20220729
  2. PREDNISOLONE [Suspect]
     Active Substance: PREDNISOLONE
     Indication: Drug hypersensitivity

REACTIONS (1)
  - Abdominal discomfort [Not Recovered/Not Resolved]

NARRATIVE: CASE EVENT DATE: 20220729
